FAERS Safety Report 4539810-9 (Version None)
Quarter: 2004Q4

REPORT INFORMATION
  Report Type: 
  Country: None (occurrence: None)
  Receive Date: 20041222
  Receipt Date: 20041207
  Transmission Date: 20050328
  Serious: Yes (Life-Threatening)
  Sender: FDA-Public Use
  Company Number: 2004210105US

PATIENT
  Age: 14 Year
  Sex: Male
  Weight: 70.3 kg

DRUGS (3)
  1. GENOTROPIN [Suspect]
     Indication: HYPOPITUITARISM
     Dosage: (21.6 MG, 21.6 MG, WEEKLY (6 INJECTIONS) SUBCUTANEOUS
     Route: 058
     Dates: start: 19970414, end: 20041019
  2. HYDROCORTISONE ACETATE (HYDROCORTISONE ACETATE) [Concomitant]
  3. LEVOTHYROXINE SODIUM [Concomitant]

REACTIONS (2)
  - OPTIC TRACT GLIOMA [None]
  - RECURRENT CANCER [None]
